FAERS Safety Report 7112801-X (Version None)
Quarter: 2010Q4

REPORT INFORMATION
  Report Type: 
  Country: None (occurrence: None)
  Receive Date: 20101119
  Receipt Date: 20100127
  Transmission Date: 20110411
  Serious: No
  Sender: FDA-Public Use
  Company Number: US-TEVA-214265USA

PATIENT
  Sex: Female
  Weight: 63.56 kg

DRUGS (1)
  1. ALBUTEROL SULFATE AUTOHALER [Suspect]
     Indication: ASTHMA
     Dosage: 1-2 PUFFS AS NEEDED
     Route: 055
     Dates: end: 20090901

REACTIONS (1)
  - DRUG INEFFECTIVE [None]
